FAERS Safety Report 5615557-2 (Version None)
Quarter: 2008Q1

REPORT INFORMATION
  Report Type: 
  Country: None (occurrence: None)
  Receive Date: 20080204
  Receipt Date: 20080204
  Transmission Date: 20080703
  Serious: Yes (Hospitalization)
  Sender: FDA-Public Use
  Company Number: None

PATIENT
  Sex: Male
  Weight: 82 kg

DRUGS (8)
  1. SORAFENIB [Suspect]
     Indication: GLIOBLASTOMA
     Dosage: 400 MG  DAYS 1-28  PO BID
     Route: 048
     Dates: start: 20080110, end: 20080125
  2. SORAFENIB [Suspect]
     Indication: GLIOBLASTOMA
     Dosage: 400 MG  DAYS 1-28  PO BID
     Route: 048
     Dates: start: 20080126
  3. TEMOZOLOMIDE [Suspect]
     Indication: GLIOBLASTOMA
     Dosage: 50 MG/M2  DAYS 1-28  PO DAILY
     Route: 048
     Dates: start: 20080110, end: 20080126
  4. DILANTIN [Concomitant]
  5. SENOKOT [Concomitant]
  6. CENTRUM SILVER [Concomitant]
  7. LORTAB [Concomitant]
  8. B6 [Concomitant]

REACTIONS (3)
  - BACK PAIN [None]
  - CHOLELITHIASIS [None]
  - PANCREATITIS ACUTE [None]
